FAERS Safety Report 23704271 (Version 1)
Quarter: 2024Q2

REPORT INFORMATION
  Report Type: Spontaneous
  Country: US (occurrence: US)
  Receive Date: 20240404
  Receipt Date: 20240404
  Transmission Date: 20240715
  Serious: Yes (Hospitalization, Other)
  Sender: FDA-Public Use
  Company Number: US-SUN PHARMACEUTICAL INDUSTRIES LTD-2024R1-439340

PATIENT
  Age: 47 Year
  Sex: Male

DRUGS (7)
  1. GABAPENTIN [Suspect]
     Active Substance: GABAPENTIN
     Indication: Alcohol use disorder
     Dosage: 600 MILLIGRAM, TID
     Route: 065
     Dates: start: 2018
  2. RISPERIDONE [Suspect]
     Active Substance: RISPERIDONE
     Indication: Alcohol use disorder
     Dosage: 2 MILLIGRAM NIGHTLY
     Route: 065
  3. VENLAFAXINE [Suspect]
     Active Substance: VENLAFAXINE HYDROCHLORIDE
     Indication: Alcohol use disorder
     Dosage: 225 MILLIGRAM, DAILY
     Route: 065
  4. ACAMPROSATE [Suspect]
     Active Substance: ACAMPROSATE
     Indication: Alcohol use disorder
     Dosage: 666 MILLIGRAM, TID
     Route: 065
     Dates: start: 2016
  5. ACAMPROSATE [Suspect]
     Active Substance: ACAMPROSATE
     Dosage: 666 MILLIGRAM, BID
     Route: 065
     Dates: start: 2016
  6. ACAMPROSATE [Suspect]
     Active Substance: ACAMPROSATE
     Dosage: 666 MILLIGRAM, TID
     Route: 065
     Dates: start: 2016
  7. NALTREXONE [Suspect]
     Active Substance: NALTREXONE
     Indication: Alcohol use disorder
     Dosage: 380 MILLIGRAM, MONTHLY
     Route: 030
     Dates: start: 2019

REACTIONS (2)
  - Disease recurrence [Unknown]
  - Product dose omission issue [Unknown]
